FAERS Safety Report 9481894 (Version 1)
Quarter: 2013Q3

REPORT INFORMATION
  Report Type: Spontaneous
  Country: US (occurrence: US)
  Receive Date: 20130828
  Receipt Date: 20130828
  Transmission Date: 20140515
  Serious: No
  Sender: FDA-Public Use
  Company Number: US-B.I. PHARMACEUTICALS,INC./RIDGEFIELD-2013-BI-25234BP

PATIENT
  Age: 78 Year
  Sex: Female
  Weight: 78 kg

DRUGS (13)
  1. TRADJENTA [Suspect]
     Indication: TYPE 2 DIABETES MELLITUS
     Dosage: 5 MG
     Route: 048
     Dates: start: 20130411, end: 201306
  2. LOVASTATIN [Concomitant]
     Indication: HYPERLIPIDAEMIA
     Dosage: 40 MG
     Route: 048
  3. LYRICA [Concomitant]
     Indication: NEURALGIA
     Dosage: 50 MG
     Route: 048
  4. HUMALOG [Concomitant]
     Indication: TYPE 2 DIABETES MELLITUS
     Route: 058
  5. FLEXERIL [Concomitant]
     Indication: BACK PAIN
     Dosage: 5 MG
     Route: 048
  6. ALLOPURINOL [Concomitant]
     Indication: HYPERURICAEMIA
     Dosage: 300 MG
     Route: 048
  7. VICODIN [Concomitant]
     Indication: OSTEOARTHRITIS
     Dosage: STRENGTH: 5/500; DAILY DOSE: 5/500
     Route: 048
  8. LANTUS [Concomitant]
     Indication: TYPE 2 DIABETES MELLITUS
     Route: 058
  9. LOSARTAN [Concomitant]
     Indication: HYPERTENSION
     Dosage: 25 MG
     Route: 048
  10. SYNTHROID [Concomitant]
     Indication: HYPOTHYROIDISM
     Dosage: 150 MCG
     Route: 048
  11. REVATIO [Concomitant]
     Indication: PULMONARY HYPERTENSION
     Dosage: 60 MG
     Route: 048
  12. RENVELA [Concomitant]
     Indication: RENAL FAILURE CHRONIC
     Dosage: 2400 MG
     Route: 048
  13. ZOLPIDEM [Concomitant]
     Indication: INSOMNIA
     Dosage: 5 MG
     Route: 048

REACTIONS (2)
  - Myalgia [Recovered/Resolved]
  - Abdominal pain [Not Recovered/Not Resolved]
